FAERS Safety Report 13742520 (Version 3)
Quarter: 2018Q2

REPORT INFORMATION
  Report Type: Report from Study
  Country: JP (occurrence: JP)
  Receive Date: 20170711
  Receipt Date: 20180411
  Transmission Date: 20180711
  Serious: Yes (Death)
  Sender: FDA-Public Use
  Company Number: JP-ACTELION-A-CH2017-156137

PATIENT
  Age: 64 Year
  Sex: Male

DRUGS (9)
  1. OPSUMIT [Suspect]
     Active Substance: MACITENTAN
     Indication: PULMONARY ARTERIAL HYPERTENSION
     Dosage: 10 MG, QD
     Route: 048
     Dates: start: 20170424, end: 20170508
  2. LANSOPRAZOLE. [Concomitant]
     Active Substance: LANSOPRAZOLE
  3. WARFARIN [Concomitant]
     Active Substance: WARFARIN
  4. CALONAL [Concomitant]
     Active Substance: ACETAMINOPHEN
  5. ADCIRCA [Concomitant]
     Active Substance: TADALAFIL
  6. LASIX [Concomitant]
     Active Substance: FUROSEMIDE
  7. OXYGEN. [Concomitant]
     Active Substance: OXYGEN
  8. PREDONINE [Concomitant]
     Active Substance: PREDNISOLONE
  9. ZOLPIDEM TARTRATE. [Concomitant]
     Active Substance: ZOLPIDEM TARTRATE

REACTIONS (2)
  - Combined pulmonary fibrosis and emphysema [Fatal]
  - Interstitial lung disease [Fatal]

NARRATIVE: CASE EVENT DATE: 20170502
